FAERS Safety Report 7227583 (Version 2)
Quarter: 2013Q2

REPORT INFORMATION
  Report Type: Spontaneous
  Country: US (occurrence: US)
  Receive Date: 20091222
  Receipt Date: 20130530
  Transmission Date: 20140414
  Serious: Yes (Other)
  Sender: FDA-Public Use
  Company Number: US-ASTRAZENECA-2009UW12038

PATIENT
  Age: 88 Year
  Sex: Female
  Weight: 60.8 kg

DRUGS (9)
  1. CRESTOR [Suspect]
     Indication: BLOOD CHOLESTEROL INCREASED
     Route: 048
     Dates: start: 2009
  2. CRESTOR [Suspect]
     Indication: BLOOD CHOLESTEROL INCREASED
     Route: 048
     Dates: start: 2009
  3. CRESTOR [Suspect]
     Indication: BLOOD CHOLESTEROL INCREASED
     Route: 048
  4. AROMASIN [Concomitant]
  5. SYNTHROID [Concomitant]
     Indication: HYPOTHYROIDISM
  6. SYNTHROID [Concomitant]
     Indication: HYPOTHYROIDISM
  7. NIACIN [Concomitant]
  8. BIOTIN [Concomitant]
     Indication: ALOPECIA
  9. CENTRUM WOMENS PLUS 50 MULTIVITAMIN [Concomitant]

REACTIONS (9)
  - Breast cancer recurrent [Unknown]
  - Sleep disorder due to a general medical condition [Not Recovered/Not Resolved]
  - Body height decreased [Unknown]
  - Alopecia [Unknown]
  - Myalgia [Unknown]
  - Muscle spasms [Unknown]
  - Muscle spasms [Not Recovered/Not Resolved]
  - Pain in extremity [Unknown]
  - Intentional drug misuse [Unknown]
